FAERS Safety Report 6674403-9 (Version None)
Quarter: 2010Q2

REPORT INFORMATION
  Report Type: 
  Country: None (occurrence: None)
  Receive Date: 20100409
  Receipt Date: 20100401
  Transmission Date: 20101027
  Serious: Yes (Hospitalization)
  Sender: FDA-Public Use
  Company Number: US-PFIZER INC-2010027701

PATIENT
  Sex: Female
  Weight: 56 kg

DRUGS (3)
  1. TIKOSYN [Suspect]
     Indication: ATRIAL FIBRILLATION
     Dosage: 375 MG, 2X/DAY
     Route: 048
     Dates: start: 20091201
  2. DILTIAZEM [Concomitant]
     Indication: HYPERTENSION
     Dosage: 120 MG, 1X/DAY
     Route: 048
  3. COUMADIN [Concomitant]
     Dosage: 5 MG, 1X/DAY
     Route: 048

REACTIONS (2)
  - INSOMNIA [None]
  - MITRAL VALVE REPAIR [None]
